FAERS Safety Report 19581266 (Version 1)
Quarter: 2021Q3

REPORT INFORMATION
  Report Type: Spontaneous
  Country: US (occurrence: US)
  Receive Date: 20210719
  Receipt Date: 20210719
  Transmission Date: 20211014
  Serious: No
  Sender: FDA-Public Use
  Company Number: None

PATIENT
  Age: 93 Year
  Sex: Female
  Weight: 58.97 kg

DRUGS (3)
  1. SYNTHROID [Concomitant]
     Active Substance: LEVOTHYROXINE SODIUM
  2. FLUCONAZOLE. [Suspect]
     Active Substance: FLUCONAZOLE
     Indication: FUNGAL INFECTION
     Route: 048
     Dates: start: 20210711, end: 20210718
  3. LOSARTIN [Concomitant]
     Active Substance: LOSARTAN

REACTIONS (3)
  - Dyskinesia [None]
  - Bradyphrenia [None]
  - Speech disorder [None]

NARRATIVE: CASE EVENT DATE: 20210717
